FAERS Safety Report 18924285 (Version 5)
Quarter: 2021Q3

REPORT INFORMATION
  Report Type: Report from Study
  Country: US (occurrence: US)
  Receive Date: 20210222
  Receipt Date: 20210930
  Transmission Date: 20211014
  Serious: Yes (Hospitalization)
  Sender: FDA-Public Use
  Company Number: US-TAKEDA-US202010807

PATIENT
  Age: 40 Year
  Sex: Female

DRUGS (4)
  1. LANADELUMAB [Suspect]
     Active Substance: LANADELUMAB
     Dosage: 300 MILLIGRAM, 1X/2WKS
     Route: 058
     Dates: start: 20200312
  2. LANADELUMAB [Suspect]
     Active Substance: LANADELUMAB
     Indication: IMMUNE SYSTEM DISORDER
     Dosage: 300 MILLILITER, Q2WEEKS
     Route: 058
     Dates: start: 20191125
  3. LANADELUMAB [Suspect]
     Active Substance: LANADELUMAB
     Dosage: 2 MILLILITER, Q2WEEKS
     Route: 058
     Dates: start: 20200312
  4. LANADELUMAB [Suspect]
     Active Substance: LANADELUMAB
     Dosage: 300 MILLIGRAM, 1X/2WKS
     Route: 058
     Dates: start: 202003

REACTIONS (3)
  - Hereditary angioedema [Recovered/Resolved]
  - Product dose omission issue [Unknown]
  - Surgery [Unknown]

NARRATIVE: CASE EVENT DATE: 20200413
